FAERS Safety Report 14959222 (Version 1)
Quarter: 2018Q2

REPORT INFORMATION
  Report Type: Spontaneous
  Country: RO (occurrence: RO)
  Receive Date: 20180531
  Receipt Date: 20180531
  Transmission Date: 20180711
  Serious: Yes (Hospitalization)
  Sender: FDA-Public Use
  Company Number: RO-PFIZER INC-2018218229

PATIENT
  Age: 54 Year
  Sex: Male
  Weight: 95 kg

DRUGS (7)
  1. FUROSEMID [Concomitant]
     Active Substance: FUROSEMIDE
     Dosage: 40 MG, 1X/DAY, MORNING
  2. PRESTARIUM /00790701/ [Concomitant]
     Active Substance: PERINDOPRIL
     Dosage: 5 MG, 1X/DAY, EVENING
  3. SPIRONOLACTONA [Concomitant]
     Dosage: 25 UNK, 2X/DAY, MORNING AND EVENING
  4. SUTENT [Suspect]
     Active Substance: SUNITINIB MALATE
     Indication: RENAL CANCER METASTATIC
     Dosage: 50 UNK, UNK
     Dates: start: 201610, end: 20180515
  5. DIGOXIN. [Concomitant]
     Active Substance: DIGOXIN
     Dosage: 0.25 MG, 1X/DAY, MORNING
  6. SINTROM [Concomitant]
     Active Substance: ACENOCOUMAROL
     Dosage: 5 MG, HALF A TABLET, 1X/DAY NOON
  7. CORYOL /00984501/ [Concomitant]
     Active Substance: CARVEDILOL
     Dosage: 6.25 MG, 1X/DAY, EVENING

REACTIONS (3)
  - Food refusal [Unknown]
  - General physical health deterioration [Not Recovered/Not Resolved]
  - Refusal of treatment by patient [Unknown]

NARRATIVE: CASE EVENT DATE: 201805
